FAERS Safety Report 7043240-8 (Version None)
Quarter: 2010Q4

REPORT INFORMATION
  Report Type: 
  Country: None (occurrence: None)
  Receive Date: 20101013
  Receipt Date: 20091019
  Transmission Date: 20110411
  Serious: No
  Sender: FDA-Public Use
  Company Number: US-ASTRAZENECA-2009SE21122

PATIENT
  Sex: Male
  Weight: 99.8 kg

DRUGS (11)
  1. SYMBICORT [Suspect]
     Indication: CHRONIC OBSTRUCTIVE PULMONARY DISEASE
     Dosage: 640 MCG
     Route: 055
  2. ALLOPURINOL [Concomitant]
  3. NEXIUM [Concomitant]
  4. CRESTOR [Concomitant]
  5. METOPROLOL SUCCINATE [Concomitant]
  6. FLOMAX [Concomitant]
  7. AVIDAR [Concomitant]
  8. VITAMINS [Concomitant]
  9. ASPIRIN [Concomitant]
  10. DIOVAN [Concomitant]
  11. PLAVIX [Concomitant]

REACTIONS (2)
  - GLOSSODYNIA [None]
  - TONGUE DISCOLOURATION [None]
